FAERS Safety Report 8895038 (Version 3)
Quarter: 2012Q4

REPORT INFORMATION
  Report Type: 
  Country: US (occurrence: US)
  Receive Date: 20121108
  Receipt Date: 20121130
  Transmission Date: 20130627
  Serious: Yes (Other)
  Sender: FDA-Public Use
  Company Number: US-PERRIGO-12US009572

PATIENT
  Age: 31 None
  Sex: Female
  Weight: 96.15 kg

DRUGS (1)
  1. IBUPROFEN 200MG-DIPHENHYDRAMINE CITRATE 38 MG 8K7 [Suspect]
     Indication: MIGRAINE
     Dosage: 2 tablets, single
     Route: 048
     Dates: start: 20121002, end: 20121002

REACTIONS (9)
  - Dyspnoea [Recovering/Resolving]
  - Abasia [Recovering/Resolving]
  - Chest discomfort [Recovering/Resolving]
  - Thrombocytopenia [Unknown]
  - Swelling face [Recovered/Resolved]
  - Oedema peripheral [Recovered/Resolved]
  - Expired drug administered [Recovering/Resolving]
  - Exposure during pregnancy [Recovered/Resolved]
  - Normal newborn [Recovered/Resolved]
